FAERS Safety Report 19210096 (Version 1)
Quarter: 2021Q2

REPORT INFORMATION
  Report Type: Spontaneous
  Country: CN (occurrence: CN)
  Receive Date: 20210504
  Receipt Date: 20210504
  Transmission Date: 20210717
  Serious: No
  Sender: FDA-Public Use
  Company Number: CN-LUPIN PHARMACEUTICALS INC.-2021-05879

PATIENT
  Age: 33 Year
  Sex: Female

DRUGS (16)
  1. METHYLPREDNISOLONE. [Suspect]
     Active Substance: METHYLPREDNISOLONE
     Indication: THROMBOCYTOPENIA
     Dosage: 200 MILLIGRAM, QD
     Route: 065
     Dates: start: 202006
  2. RECOMBINANT HUMAN THROMBOPOIETIN [Suspect]
     Active Substance: THROMBOPOIETIN
     Indication: THROMBOCYTOPENIA
     Dosage: UNK?300 U/KG/DAY
     Route: 042
     Dates: start: 202003
  3. DEXAMETHASONE. [Suspect]
     Active Substance: DEXAMETHASONE
     Indication: THROMBOCYTOPENIA
     Dosage: 10 MILLIGRAM, QD
     Route: 065
     Dates: start: 2020
  4. CYCLOSPORINE. [Suspect]
     Active Substance: CYCLOSPORINE
     Indication: THROMBOCYTOPENIA
     Dosage: 75 MILLIGRAM, BID
     Route: 065
     Dates: start: 202006
  5. IMMUNOGLOBULINS NOS [Suspect]
     Active Substance: IMMUNE GLOBULIN NOS
     Dosage: 400 MILLIGRAM/KILOGRAM, QD
     Route: 042
     Dates: start: 2020
  6. PREDNISONE. [Suspect]
     Active Substance: PREDNISONE
     Indication: THROMBOCYTOPENIA
     Dosage: 40 MILLIGRAM, QD
     Route: 048
     Dates: start: 202003
  7. METHYLPREDNISOLONE. [Suspect]
     Active Substance: METHYLPREDNISOLONE
     Dosage: 40 MILLIGRAM, QD
     Route: 065
     Dates: start: 2020
  8. METHANDROSTENOLONE [Suspect]
     Active Substance: METHANDROSTENOLONE
     Dosage: 200 MILLIGRAM, QD?PULSE THERAPY
     Route: 065
     Dates: start: 20200622
  9. HYDROXYCHLOROQUINE [Suspect]
     Active Substance: HYDROXYCHLOROQUINE
     Indication: THROMBOCYTOPENIA
     Dosage: 0.2 GRAM, BID
     Route: 065
     Dates: start: 2020
  10. IMMUNOGLOBULINS NOS [Suspect]
     Active Substance: IMMUNE GLOBULIN NOS
     Indication: THROMBOCYTOPENIA
     Dosage: 400 MILLIGRAM/KILOGRAM, QD
     Route: 042
     Dates: start: 202003
  11. METHANDROSTENOLONE [Suspect]
     Active Substance: METHANDROSTENOLONE
     Indication: THROMBOCYTOPENIA
     Dosage: 40 MILLIGRAM, QD
     Route: 065
     Dates: start: 202006
  12. ELTROMBOPAG [Suspect]
     Active Substance: ELTROMBOPAG
     Indication: THROMBOCYTOPENIA
     Dosage: 25 MILLIGRAM, QD
     Route: 065
     Dates: start: 20200702
  13. IMMUNOGLOBULINS NOS [Suspect]
     Active Substance: IMMUNE GLOBULIN NOS
     Dosage: 400 MILLIGRAM/KILOGRAM, QD
     Route: 042
     Dates: start: 2020
  14. METHANDROSTENOLONE [Suspect]
     Active Substance: METHANDROSTENOLONE
     Dosage: 40 MILLIGRAM, QD?SWITCHED TO REGULAR DOSES
     Route: 065
     Dates: start: 2020
  15. RECOMBINANT HUMAN THROMBOPOIETIN [Suspect]
     Active Substance: THROMBOPOIETIN
     Dosage: UNK?300 U/KG EVERY OTHER DAY
     Route: 042
     Dates: start: 2020
  16. ELTROMBOPAG [Suspect]
     Active Substance: ELTROMBOPAG
     Dosage: 50 MILLIGRAM, QD?DOSE INCREASED
     Route: 065
     Dates: start: 2020

REACTIONS (2)
  - Normal newborn [Unknown]
  - Exposure during pregnancy [Unknown]

NARRATIVE: CASE EVENT DATE: 2020
